FAERS Safety Report 6540767-X (Version None)
Quarter: 2010Q1

REPORT INFORMATION
  Report Type: 
  Country: None (occurrence: None)
  Receive Date: 20100118
  Receipt Date: 20100111
  Transmission Date: 20100710
  Serious: Yes (Other)
  Sender: FDA-Public Use
  Company Number: US-BAYER-200826289NA

PATIENT
  Age: 27 Year
  Sex: Female
  Weight: 88 kg

DRUGS (2)
  1. MIRENA [Suspect]
     Indication: CONTRACEPTION
     Dosage: 20 MCG/DAY CONTINUOUS
     Route: 015
     Dates: start: 20080429, end: 20080613
  2. MIRENA [Suspect]
     Dosage: 20 MCG/DAY CONTINUOUS
     Route: 015
     Dates: start: 20080613

REACTIONS (3)
  - DEVICE DISLOCATION [None]
  - PELVIC PAIN [None]
  - VAGINAL HAEMORRHAGE [None]
